FAERS Safety Report 18289387 (Version 1)
Quarter: 2020Q3

REPORT INFORMATION
  Report Type: Spontaneous
  Country: US (occurrence: US)
  Receive Date: 20200921
  Receipt Date: 20200921
  Transmission Date: 20201103
  Serious: Yes (Hospitalization)
  Sender: FDA-Public Use
  Company Number: None

PATIENT
  Age: 78 Year
  Sex: Male
  Weight: 100.8 kg

DRUGS (12)
  1. ELIQUIS [Concomitant]
     Active Substance: APIXABAN
  2. LOSARTAN. [Concomitant]
     Active Substance: LOSARTAN
  3. MULTIVITAMIN [Concomitant]
     Active Substance: VITAMINS
  4. MIRALAX [Concomitant]
     Active Substance: POLYETHYLENE GLYCOL 3350
  5. CARVEDILOL. [Concomitant]
     Active Substance: CARVEDILOL
  6. ACYCLOVIR. [Suspect]
     Active Substance: ACYCLOVIR
     Indication: HERPES ZOSTER
     Dosage: ?          QUANTITY:1 TABLET(S);OTHER FREQUENCY:5 TIMES A DAY;?
     Route: 048
  7. FINASTERIDE. [Concomitant]
     Active Substance: FINASTERIDE
  8. FLONASE [Concomitant]
     Active Substance: FLUTICASONE PROPIONATE
  9. CALCIUM [Concomitant]
     Active Substance: CALCIUM
  10. FISH OIL [Concomitant]
     Active Substance: FISH OIL
  11. TAMSULOSIN [Concomitant]
     Active Substance: TAMSULOSIN
  12. TESTOSTERONE GEL [Concomitant]
     Active Substance: TESTOSTERONE

REACTIONS (5)
  - Vomiting [None]
  - Dizziness [None]
  - Dysarthria [None]
  - Abdominal pain upper [None]
  - Gait inability [None]

NARRATIVE: CASE EVENT DATE: 20200825
